FAERS Safety Report 7468061-3 (Version None)
Quarter: 2011Q2

REPORT INFORMATION
  Report Type: 
  Country: None (occurrence: None)
  Receive Date: 20110509
  Receipt Date: 20110321
  Transmission Date: 20111010
  Serious: Yes (Hospitalization)
  Sender: FDA-Public Use
  Company Number: US-ALEXION-A201100363

PATIENT
  Sex: Male
  Weight: 74.83 kg

DRUGS (3)
  1. SOLIRIS [Suspect]
     Dosage: 900 MG, Q2W
     Route: 042
  2. FOLIC ACID [Concomitant]
     Indication: PAROXYSMAL NOCTURNAL HAEMOGLOBINURIA
     Dosage: 1 MG, QD
     Route: 048
     Dates: start: 20010101
  3. SOLIRIS [Suspect]
     Indication: PAROXYSMAL NOCTURNAL HAEMOGLOBINURIA
     Dosage: UNK
     Dates: start: 20060101

REACTIONS (2)
  - MENINGOCOCCAL SEPSIS [None]
  - ASTHENIA [None]
